FAERS Safety Report 16333574 (Version 1)
Quarter: 2019Q2

REPORT INFORMATION
  Report Type: Spontaneous
  Country: US (occurrence: US)
  Receive Date: 20190520
  Receipt Date: 20190520
  Transmission Date: 20190711
  Serious: No
  Sender: FDA-Public Use
  Company Number: US-UPSHER-SMITH LABORATORIES, LLC-2018USL00407

PATIENT
  Sex: Female

DRUGS (1)
  1. KLOR-CON [Suspect]
     Active Substance: POTASSIUM CHLORIDE

REACTIONS (2)
  - Diarrhoea [Unknown]
  - Product residue present [Unknown]

NARRATIVE: CASE EVENT DATE: 2018
